FAERS Safety Report 16535278 (Version 3)
Quarter: 2019Q3

REPORT INFORMATION
  Report Type: Spontaneous
  Country: US (occurrence: US)
  Receive Date: 20190705
  Receipt Date: 20190801
  Transmission Date: 20191004
  Serious: No
  Sender: FDA-Public Use
  Company Number: US-BIOGEN-2019BI00757305

PATIENT
  Age: 54 Year
  Sex: Female

DRUGS (3)
  1. PLEGRIDY [Suspect]
     Active Substance: PEGINTERFERON BETA-1A
     Route: 058
     Dates: start: 20190725
  2. PLEGRIDY [Suspect]
     Active Substance: PEGINTERFERON BETA-1A
     Indication: MULTIPLE SCLEROSIS
     Route: 058
     Dates: start: 20190619
  3. PLEGRIDY [Suspect]
     Active Substance: PEGINTERFERON BETA-1A
     Route: 058
     Dates: start: 20190711

REACTIONS (14)
  - Gait inability [Not Recovered/Not Resolved]
  - Road traffic accident [Recovered/Resolved]
  - Device malfunction [Unknown]
  - Product dose omission [Unknown]
  - Visual impairment [Not Recovered/Not Resolved]
  - Migraine [Unknown]
  - Optic neuritis [Not Recovered/Not Resolved]
  - Palpitations [Not Recovered/Not Resolved]
  - Fall [Recovered/Resolved]
  - Abdominal discomfort [Unknown]
  - Bone pain [Not Recovered/Not Resolved]
  - Limb injury [Unknown]
  - Alopecia [Not Recovered/Not Resolved]
  - Influenza like illness [Unknown]

NARRATIVE: CASE EVENT DATE: 20190625
